FAERS Safety Report 10370447 (Version 1)
Quarter: 2014Q3

REPORT INFORMATION
  Report Type: Spontaneous
  Country: US (occurrence: US)
  Receive Date: 20140808
  Receipt Date: 20140808
  Transmission Date: 20150326
  Serious: No
  Sender: FDA-Public Use
  Company Number: US-TEVA-500769USA

PATIENT

DRUGS (2)
  1. ARMODAFINIL. [Suspect]
     Active Substance: ARMODAFINIL
  2. MODAFINIL. [Suspect]
     Active Substance: MODAFINIL

REACTIONS (1)
  - Impulse-control disorder [Unknown]
